FAERS Safety Report 4759802-4 (Version None)
Quarter: 2005Q3

REPORT INFORMATION
  Report Type: 
  Country: None (occurrence: None)
  Receive Date: 20050831
  Receipt Date: 20050811
  Transmission Date: 20060218
  Serious: Yes (Hospitalization)
  Sender: FDA-Public Use
  Company Number: USA0508105249

PATIENT
  Age: 55 Year
  Sex: Female

DRUGS (4)
  1. CYMBALTA [Suspect]
     Indication: MAJOR DEPRESSION
     Dosage: 60 MG
  2. EFFEXOR [Concomitant]
  3. WELLBUTRIN [Concomitant]
  4. MORPHINE [Concomitant]

REACTIONS (2)
  - HALLUCINATIONS, MIXED [None]
  - PSYCHOTIC DISORDER [None]
